FAERS Safety Report 5407558-4 (Version None)
Quarter: 2007Q3

REPORT INFORMATION
  Report Type: 
  Country: None (occurrence: None)
  Receive Date: 20070807
  Receipt Date: 20070726
  Transmission Date: 20080115
  Serious: Yes (Hospitalization, Other)
  Sender: FDA-Public Use
  Company Number: CA-PFIZER INC-2007022383

PATIENT
  Sex: Male

DRUGS (1)
  1. XANAX [Suspect]
     Route: 048

REACTIONS (5)
  - ABNORMAL BEHAVIOUR [None]
  - AMNESIA [None]
  - BRAIN DAMAGE [None]
  - DRUG WITHDRAWAL SYNDROME [None]
  - EPILEPSY [None]
